FAERS Safety Report 21842169 (Version 1)
Quarter: 2023Q1

REPORT INFORMATION
  Report Type: Spontaneous
  Country: US (occurrence: None)
  Receive Date: 20230109
  Receipt Date: 20230109
  Transmission Date: 20230418
  Serious: Yes (Death)
  Sender: FDA-Public Use
  Company Number: None

PATIENT
  Age: 85 Year
  Sex: Female
  Weight: 83.28 kg

DRUGS (19)
  1. IMATINIB [Suspect]
     Active Substance: IMATINIB
     Indication: Chronic myeloid leukaemia
     Dosage: FREQUENCY : DAILY;?
     Route: 048
     Dates: start: 20211204, end: 20230107
  2. ALBUTEROL [Concomitant]
  3. ASPIRIN [Concomitant]
  4. ATORVASTATIN [Concomitant]
  5. DOCUSATE [Concomitant]
  6. FAMOTIDINE [Concomitant]
  7. FERROUS SULFATE [Concomitant]
  8. ISOSORBIDE [Concomitant]
  9. LASIX [Concomitant]
  10. LEVALBUTEROL [Concomitant]
  11. LORATADINE [Concomitant]
  12. LOSARTAN [Concomitant]
  13. METOPROLOL [Concomitant]
     Active Substance: METOPROLOL
  14. VITAMINS [Concomitant]
     Active Substance: VITAMINS
  15. ONDANSETRON [Concomitant]
  16. PLAVIX [Concomitant]
  17. VITAMIN C [Concomitant]
  18. VITAMIN D3 [Concomitant]
  19. ZOFRAN [Concomitant]
     Active Substance: ONDANSETRON HYDROCHLORIDE

REACTIONS (1)
  - Death [None]
